FAERS Safety Report 25545971 (Version 1)
Quarter: 2025Q3

REPORT INFORMATION
  Report Type: Spontaneous
  Country: US (occurrence: US)
  Receive Date: 20250712
  Receipt Date: 20250712
  Transmission Date: 20251021
  Serious: Yes (Death, Life-Threatening, Other)
  Sender: UNITED THERAPEUTICS
  Company Number: US-UNITED THERAPEUTICS-UNT-2025-023061

PATIENT
  Age: 4 Year
  Sex: Male

DRUGS (17)
  1. UNITUXIN [Suspect]
     Active Substance: DINUTUXIMAB
     Indication: Neuroblastoma
     Route: 041
  2. UNITUXIN [Suspect]
     Active Substance: DINUTUXIMAB
     Route: 041
  3. UNITUXIN [Suspect]
     Active Substance: DINUTUXIMAB
     Route: 041
  4. LORLATINIB [Suspect]
     Active Substance: LORLATINIB
     Indication: Neuroblastoma
  5. IRINOTECAN HYDROCHLORIDE [Suspect]
     Active Substance: IRINOTECAN HYDROCHLORIDE
     Indication: Neuroblastoma
     Dosage: 50 MG/M2, QD [1-12 CYCLES] (ON DAYS 1?5)
     Route: 041
  6. IRINOTECAN HYDROCHLORIDE [Suspect]
     Active Substance: IRINOTECAN HYDROCHLORIDE
     Dosage: 50 MG/M2, QD [1-3 CYCLES] (ON DAYS 1?5)
     Route: 041
  7. IRINOTECAN HYDROCHLORIDE [Suspect]
     Active Substance: IRINOTECAN HYDROCHLORIDE
     Dosage: 50 MG/M2, QD (ON DAYS 1?5)
     Route: 041
  8. TEMOZOLOMIDE [Suspect]
     Active Substance: TEMOZOLOMIDE
     Indication: Neuroblastoma
     Dosage: 150 MG/M2, QD [1-12 CYCLES] (ON DAYS 1?5)
  9. TEMOZOLOMIDE [Suspect]
     Active Substance: TEMOZOLOMIDE
     Dosage: 150 MG/M2, QD [1-3 CYCLES] (ON DAYS 1?5)
  10. TEMOZOLOMIDE [Suspect]
     Active Substance: TEMOZOLOMIDE
     Dosage: 150 MG/M2, QD (ON DAYS 1?5)
  11. NAXITAMAB [Concomitant]
     Active Substance: NAXITAMAB
     Indication: Neuroblastoma
     Dosage: 2.25 MG/KG, QD [1-8 CYCLES] [ON DAYS 2,4,9,11]
     Route: 041
  12. CYCLOPHOSPHAMIDE [Concomitant]
     Active Substance: CYCLOPHOSPHAMIDE
     Indication: Neuroblastoma
     Dosage: 250 MG/M2, QD [1-8 CYCLES] [ON DAYS 1-5]
     Route: 041
  13. TOPOTECAN [Concomitant]
     Active Substance: TOPOTECAN HYDROCHLORIDE
     Indication: Neuroblastoma
     Dosage: 0.75 MG/M2, QD [1-8 CYCLES] [ON DAYS 1-5]
  14. GRANULOCYTE-MACROPHAGE COLONY-STIMULATING FACTOR [Concomitant]
     Active Substance: GRANULOCYTE-MACROPHAGE COLONY-STIMULATING FACTOR
     Indication: Neuroblastoma
  15. GRANULOCYTE-MACROPHAGE COLONY-STIMULATING FACTOR [Concomitant]
     Active Substance: GRANULOCYTE-MACROPHAGE COLONY-STIMULATING FACTOR
  16. GRANULOCYTE-MACROPHAGE COLONY-STIMULATING FACTOR [Concomitant]
     Active Substance: GRANULOCYTE-MACROPHAGE COLONY-STIMULATING FACTOR
  17. GRANULOCYTE-MACROPHAGE COLONY-STIMULATING FACTOR [Concomitant]
     Active Substance: GRANULOCYTE-MACROPHAGE COLONY-STIMULATING FACTOR

REACTIONS (7)
  - Neuroblastoma [Fatal]
  - Respiratory failure [Recovered/Resolved]
  - Haemodynamic instability [Unknown]
  - Pulmonary toxicity [Recovered/Resolved]
  - Pneumonia influenzal [Unknown]
  - Asthma [Unknown]
  - Off label use [Unknown]
